FAERS Safety Report 24976625 (Version 2)
Quarter: 2025Q1

REPORT INFORMATION
  Report Type: Report from Study
  Country: FR (occurrence: FR)
  Receive Date: 20250217
  Receipt Date: 20250226
  Transmission Date: 20250409
  Serious: Yes (Death, Hospitalization)
  Sender: TEVA
  Company Number: FR-TEVA-VS-3298352

PATIENT
  Age: 47 Year
  Sex: Female

DRUGS (2)
  1. LAMOTRIGINE [Suspect]
     Active Substance: LAMOTRIGINE
     Indication: Product used for unknown indication
     Route: 065
  2. GANCICLOVIR [Concomitant]
     Active Substance: GANCICLOVIR
     Indication: Human herpesvirus 6 infection reactivation
     Route: 065

REACTIONS (1)
  - Drug reaction with eosinophilia and systemic symptoms [Fatal]
